FAERS Safety Report 16175834 (Version 1)
Quarter: 2019Q2

REPORT INFORMATION
  Report Type: Spontaneous
  Country: PT (occurrence: PT)
  Receive Date: 20190409
  Receipt Date: 20190409
  Transmission Date: 20190711
  Serious: Yes (Hospitalization, Other)
  Sender: FDA-Public Use
  Company Number: PT-GLAXOSMITHKLINE-PT2019GSK060391

PATIENT
  Age: 40 Year
  Sex: Male

DRUGS (2)
  1. VALPROIC ACID. [Concomitant]
     Active Substance: VALPROIC ACID
     Indication: AFFECTIVE DISORDER
     Dosage: 500 MG, DAILY
  2. BUPROPION. [Suspect]
     Active Substance: BUPROPION
     Indication: DRUG DEPENDENCE
     Dosage: 300 MG DAILY

REACTIONS (10)
  - Toxicity to various agents [Unknown]
  - Fatigue [Unknown]
  - Cyanosis central [Unknown]
  - Disorientation [Unknown]
  - Methaemoglobinaemia [Recovered/Resolved]
  - Dyspnoea [Unknown]
  - Confusional state [Unknown]
  - Generalised tonic-clonic seizure [Recovered/Resolved]
  - Extra dose administered [Unknown]
  - Oxygen saturation abnormal [Unknown]
